FAERS Safety Report 18510073 (Version 1)
Quarter: 2020Q4

REPORT INFORMATION
  Report Type: Spontaneous
  Country: DE (occurrence: DE)
  Receive Date: 20201117
  Receipt Date: 20201117
  Transmission Date: 20210114
  Serious: Yes (Life-Threatening, Hospitalization)
  Sender: FDA-Public Use
  Company Number: DE-TEVA-2020-DE-1848636

PATIENT
  Age: 78 Year
  Sex: Female

DRUGS (10)
  1. TRIMBOW 87MIKROGRAMM/5MIKROGRAMM/9MIKROGRAMM [Concomitant]
     Dosage: 2 DOSAGE FORMS DAILY; 87 | 5 | 9 UG, 1-0-1-0, METERED DOSE AEROSOL
     Route: 055
  2. SALBUTAMOL [Concomitant]
     Active Substance: ALBUTEROL
     Dosage: IF NECESSARY 2X, METERED AEROSOL
     Route: 055
  3. B12 ANKERMANN 1000UG [Concomitant]
     Dosage: 1000 MICROGRAM DAILY; 1-0-0-0
  4. BAYOTENSIN AKUT [Concomitant]
     Active Substance: NITRENDIPINE
     Dosage: IF NECESSARY
  5. COLECALCIFEROL (VITAMIN D) [Concomitant]
     Dosage: 1000 IU (INTERNATIONAL UNIT) DAILY; 1-0-0-0
     Route: 048
  6. PREDNISOLON [Suspect]
     Active Substance: PREDNISOLONE
     Dosage: 80 MILLIGRAM DAILY; 1-0-1-0
     Route: 048
  7. FOLSAURE [Concomitant]
     Active Substance: FOLIC ACID
     Dosage: 5 MG, 1X
     Route: 048
  8. TORASEMID [Concomitant]
     Active Substance: TORSEMIDE
     Dosage: 5 MILLIGRAM DAILY; 1-0-0-0
     Route: 048
  9. PANTOPRAZOL [Concomitant]
     Active Substance: PANTOPRAZOLE SODIUM
     Dosage: 80 MILLIGRAM DAILY; 1-0-1-0
     Route: 048
  10. VALSARTAN. [Concomitant]
     Active Substance: VALSARTAN
     Dosage: 320 MILLIGRAM DAILY; 1-0-1-0
     Route: 048

REACTIONS (8)
  - General physical health deterioration [Unknown]
  - Tachypnoea [Unknown]
  - Abdominal pain [Unknown]
  - Abdominal pain upper [Unknown]
  - Condition aggravated [Unknown]
  - Chronic obstructive pulmonary disease [Unknown]
  - Dyspnoea [Unknown]
  - Cyanosis [Unknown]
